FAERS Safety Report 25814704 (Version 1)
Quarter: 2025Q3

REPORT INFORMATION
  Report Type: Spontaneous
  Country: US (occurrence: US)
  Receive Date: 20250917
  Receipt Date: 20250917
  Transmission Date: 20251020
  Serious: No
  Sender: ALVOGEN
  Company Number: US-ALVOGEN-2025096352

PATIENT
  Sex: Female

DRUGS (1)
  1. GRALISE [Suspect]
     Active Substance: GABAPENTIN
     Indication: Post herpetic neuralgia
     Dosage: 600 MG 3 TIMES A DAY, SINCE 4 YEARS

REACTIONS (2)
  - Product availability issue [Unknown]
  - Insurance issue [Unknown]
